FAERS Safety Report 8310138 (Version 4)
Quarter: 2013Q1

REPORT INFORMATION
  Report Type: Spontaneous
  Country: NO (occurrence: NO)
  Receive Date: 20111223
  Receipt Date: 20130110
  Transmission Date: 20140127
  Serious: Yes (Death)
  Sender: FDA-Public Use
  Company Number: NO-JNJFOC-20111209774

PATIENT
  Age: 29 Year
  Sex: Female

DRUGS (3)
  1. TOPIRAMATE [Suspect]
     Indication: EPILEPSY
     Route: 048
  2. LAMOTRIGINE [Suspect]
     Indication: EPILEPSY
     Route: 065
  3. SODIUM VALPROATE [Suspect]
     Indication: EPILEPSY
     Route: 065

REACTIONS (1)
  - Sudden unexplained death in epilepsy [Fatal]
